FAERS Safety Report 10505334 (Version 1)
Quarter: 2014Q3

REPORT INFORMATION
  Report Type: Spontaneous
  Country: US (occurrence: None)
  Receive Date: 20140915
  Receipt Date: 20140915
  Transmission Date: 20150326
  Serious: Yes (Other)
  Sender: FDA-Public Use
  Company Number: 2014-US-007936

PATIENT
  Age: 20 Year
  Sex: Female
  Weight: 59 kg

DRUGS (5)
  1. XYREM [Suspect]
     Active Substance: SODIUM OXYBATE
     Indication: NARCOLEPSY
     Route: 048
     Dates: start: 20140608, end: 201406
  2. KLONOPIN [Concomitant]
     Active Substance: CLONAZEPAM
  3. DEPLIN (CALCIUM LEVOMEFOLATE) [Concomitant]
  4. ZYRTEC [Concomitant]
     Active Substance: CETIRIZINE HYDROCHLORIDE
  5. SPRINTEC (ETHINYLESTRADIO, NORGESTIMATE) [Concomitant]

REACTIONS (5)
  - Tonsillitis [None]
  - Headache [None]
  - Depression [None]
  - Asthenia [None]
  - Streptococcal infection [None]

NARRATIVE: CASE EVENT DATE: 20140618
